FAERS Safety Report 8784540 (Version 1)
Quarter: 2012Q4

REPORT INFORMATION
  Report Type: Spontaneous
  Country: US (occurrence: None)
  Receive Date: 20120907
  Receipt Date: 20120907
  Transmission Date: 20130627
  Serious: Yes (Other)
  Sender: FDA-Public Use
  Company Number: None

PATIENT
  Age: 66 Year
  Sex: Male
  Weight: 58.97 kg

DRUGS (2)
  1. MUPIROCIN [Suspect]
     Indication: SKIN RASH
     Dosage: APPLY OINTMENT
     Route: 061
     Dates: start: 20120824, end: 20120825
  2. MUPIROCIN [Suspect]
     Indication: SKIN INFECTION
     Dosage: APPLY OINTMENT
     Route: 061
     Dates: start: 20120824, end: 20120825

REACTIONS (3)
  - Product quality issue [None]
  - Product substitution issue [None]
  - Rash [None]
